FAERS Safety Report 13522629 (Version 2)
Quarter: 2017Q2

REPORT INFORMATION
  Report Type: Spontaneous
  Country: CH (occurrence: RO)
  Receive Date: 20170508
  Receipt Date: 20170601
  Transmission Date: 20170830
  Serious: Yes (Death)
  Sender: FDA-Public Use
  Company Number: CH-LPDUSPRD-20170562

PATIENT

DRUGS (1)
  1. VENOFER [Suspect]
     Active Substance: IRON SUCROSE
     Dosage: 200 MG
     Route: 064

REACTIONS (5)
  - Gliosis [Fatal]
  - Pneumonia cytomegaloviral [Fatal]
  - Brain oedema [Fatal]
  - Brain herniation [Fatal]
  - Premature baby [Fatal]

NARRATIVE: CASE EVENT DATE: 201311
